FAERS Safety Report 19775060 (Version 1)
Quarter: 2021Q3

REPORT INFORMATION
  Report Type: Spontaneous
  Country: DE (occurrence: DE)
  Receive Date: 20210901
  Receipt Date: 20210901
  Transmission Date: 20211014
  Serious: Yes (Hospitalization)
  Sender: FDA-Public Use
  Company Number: DE-MICRO LABS LIMITED-ML2021-02128

PATIENT
  Age: 61 Year
  Sex: Male

DRUGS (4)
  1. NEPAFENAC [Concomitant]
     Active Substance: NEPAFENAC
     Route: 047
  2. SAGEPALME [Concomitant]
     Route: 048
  3. BRIMONIDINE [Concomitant]
     Active Substance: BRIMONIDINE TARTRATE
     Route: 047
  4. DORZOLAMIDE/TIMOLOL [Suspect]
     Active Substance: DORZOLAMIDE\TIMOLOL
     Route: 047

REACTIONS (5)
  - Renal colic [Recovering/Resolving]
  - Nausea [Recovering/Resolving]
  - Flank pain [Recovering/Resolving]
  - Back pain [Recovering/Resolving]
  - Nocturia [Recovering/Resolving]
